FAERS Safety Report 22635312 (Version 1)
Quarter: 2023Q2

REPORT INFORMATION
  Report Type: Report from Study
  Country: US (occurrence: US)
  Receive Date: 20230623
  Receipt Date: 20230623
  Transmission Date: 20230722
  Serious: Yes (Other)
  Sender: FDA-Public Use
  Company Number: US-MYLANLABS-2023M1066278

PATIENT
  Sex: Female

DRUGS (2)
  1. PACLITAXEL [Suspect]
     Active Substance: PACLITAXEL
     Indication: Ovarian cancer
     Dosage: 80 MILLIGRAM/SQ. METER, ON DAYS 0, 7, AND 14 OF 28 DAY CYCLES.
     Route: 042
  2. NAVICIXIZUMAB [Suspect]
     Active Substance: NAVICIXIZUMAB
     Indication: Ovarian cancer
     Dosage: 4 MILLIGRAM/KILOGRAM, Q2W (ONCE EVERY 2 WEEKS)
     Route: 042

REACTIONS (1)
  - Duodenal ulcer [Unknown]
